FAERS Safety Report 5657117-3 (Version None)
Quarter: 2008Q1

REPORT INFORMATION
  Report Type: 
  Country: None (occurrence: None)
  Receive Date: 20080310
  Receipt Date: 20080305
  Transmission Date: 20080703
  Serious: Yes (Death, Hospitalization)
  Sender: FDA-Public Use
  Company Number: TH-JNJFOC-20080300020

PATIENT
  Age: 35 Year
  Sex: Male

DRUGS (3)
  1. ULTRACET [Suspect]
     Indication: ANALGESIA
     Route: 048
  2. PARECOXIB SODIUM [Suspect]
     Indication: ANALGESIA
     Route: 030
  3. ARCOXIA [Suspect]
     Indication: ANALGESIA
     Route: 065

REACTIONS (4)
  - CONVULSION [None]
  - DEATH [None]
  - EPISTAXIS [None]
  - MOUTH HAEMORRHAGE [None]
